FAERS Safety Report 12689296 (Version 1)
Quarter: 2016Q3

REPORT INFORMATION
  Report Type: Spontaneous
  Country: JP (occurrence: JP)
  Receive Date: 20160826
  Receipt Date: 20160826
  Transmission Date: 20161109
  Serious: Yes (Other)
  Sender: FDA-Public Use
  Company Number: JP-MYLANLABS-2016M1035786

PATIENT

DRUGS (16)
  1. FLUOROURACIL. [Concomitant]
     Active Substance: FLUOROURACIL
     Indication: COLORECTAL CANCER STAGE IV
     Dosage: 400 MG/M2 ON DAY 1
     Route: 050
     Dates: start: 201207
  2. LEVOTHYROXINE SODIUM. [Concomitant]
     Active Substance: LEVOTHYROXINE SODIUM
     Indication: PRODUCT USED FOR UNKNOWN INDICATION
     Dosage: 75 MICROG DAILY
     Route: 065
  3. WARFARIN [Suspect]
     Active Substance: WARFARIN
     Dosage: 1.5 MG DAILY; THEN INCREASED TO 2MG WITH CONCOMITANT REGORAFENIB
     Route: 065
  4. WARFARIN [Interacting]
     Active Substance: WARFARIN
     Indication: ANTICOAGULANT THERAPY
     Dosage: 2 MG DAILY; AT START OF REGORAFENIB
     Route: 065
     Dates: start: 2013
  5. SPIRONOLACTONE. [Concomitant]
     Active Substance: SPIRONOLACTONE
     Indication: PRODUCT USED FOR UNKNOWN INDICATION
     Dosage: 25 MG DAILY
     Route: 065
  6. FLUOROURACIL. [Concomitant]
     Active Substance: FLUOROURACIL
     Dosage: 2400 MG/M2 OVER 46 H EVERY 2 WEEKS
     Route: 050
     Dates: start: 201207
  7. REGORAFENIB [Interacting]
     Active Substance: REGORAFENIB
     Indication: COLON CANCER STAGE IV
     Dosage: 120 MG DAILY ON DAYS 1-21 EVERY 4 WEEKS
     Route: 065
     Dates: start: 201310
  8. NICORANDIL [Concomitant]
     Active Substance: NICORANDIL
     Indication: PRODUCT USED FOR UNKNOWN INDICATION
     Dosage: 10 MG DAILY
     Route: 065
  9. PRAVASTATIN. [Concomitant]
     Active Substance: PRAVASTATIN
     Indication: PRODUCT USED FOR UNKNOWN INDICATION
     Dosage: 5 MG DAILY
     Route: 065
  10. ALLOPURINOL. [Concomitant]
     Active Substance: ALLOPURINOL
     Indication: PRODUCT USED FOR UNKNOWN INDICATION
     Dosage: 200 MG DAILY
     Route: 065
  11. WARFARIN [Suspect]
     Active Substance: WARFARIN
     Dosage: 1 MG DAILY; THEN INCREASED TO 1.5MG
     Route: 065
  12. GIMERACIL W/OTERACIL POTASSIUM/TEGAFUR [Suspect]
     Active Substance: GIMERACIL\OTERACIL\TEGAFUR
     Indication: COLON CANCER STAGE IV
     Dosage: FOR 2 WEEKS REPEATED EVERY 4 WEEKS
     Route: 065
  13. FOLINIC ACID [Concomitant]
     Active Substance: LEUCOVORIN
     Indication: COLORECTAL CANCER STAGE IV
     Dosage: 200 MG/M2
     Route: 050
     Dates: start: 201207
  14. IRINOTECAN [Suspect]
     Active Substance: IRINOTECAN
     Indication: COLON CANCER STAGE IV
     Dosage: 125 MG/M2 ON DAY 1 AND 15
     Route: 065
  15. WARFARIN [Suspect]
     Active Substance: WARFARIN
     Indication: ANTICOAGULANT THERAPY
     Dosage: 2 MG DAILY; SUBSQUENTLY REDUCED TO 1MG
     Route: 065
  16. OXALIPLATIN. [Concomitant]
     Active Substance: OXALIPLATIN
     Indication: COLORECTAL CANCER STAGE IV
     Dosage: 85 MG/M2
     Route: 050
     Dates: start: 201207

REACTIONS (4)
  - Drug interaction [Recovered/Resolved]
  - Interstitial lung disease [Recovered/Resolved]
  - Palmar-plantar erythrodysaesthesia syndrome [Unknown]
  - Coagulation time prolonged [Recovered/Resolved]
